FAERS Safety Report 7625196-X (Version None)
Quarter: 2011Q3

REPORT INFORMATION
  Report Type: 
  Country: None (occurrence: None)
  Receive Date: 20110713
  Receipt Date: 20110630
  Transmission Date: 20111222
  Serious: Yes (Other)
  Sender: FDA-Public Use
  Company Number: 2011P1007494

PATIENT
  Age: 36 Year
  Sex: Male

DRUGS (2)
  1. ALBENZA [Suspect]
     Indication: TOXOCARIASIS
     Dosage: 1000 MG;QD;PO, 1000 MG;QD;PO
     Route: 048
     Dates: start: 20090914, end: 20090925
  2. ALBENZA [Suspect]
     Indication: TOXOCARIASIS
     Dosage: 1000 MG;QD;PO, 1000 MG;QD;PO
     Route: 048
     Dates: start: 20091030, end: 20091101

REACTIONS (9)
  - MALAISE [None]
  - RASH GENERALISED [None]
  - DISEASE RECURRENCE [None]
  - RASH PRURITIC [None]
  - EOSINOPHIL COUNT INCREASED [None]
  - TOXOCARIASIS [None]
  - HEPATIC ENZYME INCREASED [None]
  - LIVER DISORDER [None]
  - ERYTHEMA [None]
